FAERS Safety Report 14192923 (Version 1)
Quarter: 2017Q4

REPORT INFORMATION
  Report Type: Spontaneous
  Country: RU (occurrence: RU)
  Receive Date: 20171115
  Receipt Date: 20171115
  Transmission Date: 20180321
  Serious: Yes (Other)
  Sender: FDA-Public Use
  Company Number: RU-BAYER-2017-197875

PATIENT
  Age: 30 Year
  Sex: Female

DRUGS (2)
  1. MIRENA [Suspect]
     Active Substance: LEVONORGESTREL
     Indication: ADENOMYOSIS
     Dosage: 20 MCG/24HR, CONT
     Route: 015
     Dates: start: 20170802, end: 20170905
  2. YARINA [Suspect]
     Active Substance: DROSPIRENONE\ETHINYL ESTRADIOL
     Indication: OVARIAN RUPTURE
     Route: 048

REACTIONS (12)
  - Face oedema [None]
  - Ovarian cyst [None]
  - Uterine pain [None]
  - Rash [None]
  - Device use issue [None]
  - Abdominal distension [None]
  - Erythema [Recovered/Resolved]
  - Off label use of device [None]
  - Product use in unapproved indication [None]
  - Salpingo-oophoritis [None]
  - Nausea [None]
  - Off label use [None]
